FAERS Safety Report 13861205 (Version 2)
Quarter: 2017Q3

REPORT INFORMATION
  Report Type: Spontaneous
  Country: IT (occurrence: IT)
  Receive Date: 20170811
  Receipt Date: 20170921
  Transmission Date: 20171127
  Serious: Yes (Death, Other)
  Sender: FDA-Public Use
  Company Number: IT-ALEXION PHARMACEUTICALS INC.-A201708735

PATIENT
  Age: 3 Year
  Sex: Male

DRUGS (2)
  1. SOLIRIS [Suspect]
     Active Substance: ECULIZUMAB
     Indication: THROMBOTIC MICROANGIOPATHY
     Dosage: 600 MG, Q3W
     Route: 042
  2. SOLIRIS [Suspect]
     Active Substance: ECULIZUMAB
     Indication: OFF LABEL USE

REACTIONS (12)
  - Pneumonia [Unknown]
  - Oedema peripheral [Fatal]
  - Thrombocytopenia [Unknown]
  - Anaemia [Unknown]
  - Off label use [Unknown]
  - Apnoea [Unknown]
  - Pericardial effusion [Fatal]
  - Respiratory distress [Fatal]
  - Respiratory disorder [Unknown]
  - Nuclear magnetic resonance imaging abnormal [Recovered/Resolved]
  - Microangiopathy [Unknown]
  - Cardiovascular disorder [Fatal]
